FAERS Safety Report 4913646-9 (Version None)
Quarter: 2006Q1

REPORT INFORMATION
  Report Type: 
  Country: None (occurrence: None)
  Receive Date: 20060216
  Receipt Date: 20060207
  Transmission Date: 20060701
  Serious: Yes (Hospitalization)
  Sender: FDA-Public Use
  Company Number: PHBS2006FI02222

PATIENT
  Age: 77 Year
  Sex: Female

DRUGS (10)
  1. EXELON [Suspect]
     Indication: DEMENTIA ALZHEIMER'S TYPE
     Dosage: 6 MG/D
     Route: 048
     Dates: start: 20051001, end: 20060114
  2. EXELON [Suspect]
     Dosage: 9 MG/D
     Route: 048
     Dates: start: 20060115
  3. EXELON [Suspect]
     Dosage: 6MG/DAY
  4. SEROQUEL [Concomitant]
  5. CARDIOL [Concomitant]
  6. DIFORMIN RETARD [Concomitant]
  7. DUREKAL [Concomitant]
  8. SIMVASTATIN [Concomitant]
  9. HYDREX [Concomitant]
  10. PROTAPHANE MC [Concomitant]

REACTIONS (6)
  - DIARRHOEA [None]
  - DRUG INEFFECTIVE [None]
  - GASTRIC DISORDER [None]
  - NAUSEA [None]
  - URINARY TRACT INFECTION [None]
  - VOMITING [None]
